FAERS Safety Report 24200557 (Version 1)
Quarter: 2024Q3

REPORT INFORMATION
  Report Type: Spontaneous
  Country: US (occurrence: US)
  Receive Date: 20240812
  Receipt Date: 20240812
  Transmission Date: 20241017
  Serious: No
  Sender: ABBVIE
  Company Number: US-ABBVIE-5866632

PATIENT
  Sex: Female

DRUGS (2)
  1. LUPRON DEPOT [Suspect]
     Active Substance: LEUPROLIDE ACETATE
     Indication: Precocious puberty
     Dosage: 1 MONTH DOSE
     Route: 065
  2. LUPRON DEPOT [Suspect]
     Active Substance: LEUPROLIDE ACETATE
     Dosage: 3 MONTH DOSE
     Route: 065

REACTIONS (5)
  - Impaired quality of life [Unknown]
  - Injection site pain [Unknown]
  - Haematoma [Unknown]
  - Gait disturbance [Unknown]
  - Mobility decreased [Unknown]
